FAERS Safety Report 17208268 (Version 1)
Quarter: 2019Q4

REPORT INFORMATION
  Report Type: Spontaneous
  Country: US (occurrence: US)
  Receive Date: 20191227
  Receipt Date: 20191227
  Transmission Date: 20200122
  Serious: Yes (Other)
  Sender: FDA-Public Use
  Company Number: US-BECTON DICKINSON-2019BDN00442

PATIENT

DRUGS (2)
  1. CHLORAPREP [Suspect]
     Active Substance: CHLORHEXIDINE GLUCONATE\ISOPROPYL ALCOHOL
     Indication: INFECTION PROPHYLAXIS
     Dosage: UNK
     Route: 061
  2. TEGADERM [Suspect]
     Active Substance: 2-HYDROXYETHYL METHACRYLATE\DEVICE

REACTIONS (3)
  - Chemical burns of eye [Unknown]
  - Blindness unilateral [Recovering/Resolving]
  - Exposure via eye contact [Unknown]
